FAERS Safety Report 16978183 (Version 1)
Quarter: 2019Q4

REPORT INFORMATION
  Report Type: Spontaneous
  Country: FR (occurrence: FR)
  Receive Date: 20191031
  Receipt Date: 20191031
  Transmission Date: 20200122
  Serious: Yes (Hospitalization)
  Sender: FDA-Public Use
  Company Number: FR-ALLERGAN-1943022US

PATIENT
  Sex: Male
  Weight: 94 kg

DRUGS (9)
  1. ESCITALOPRAM OXALATE - BP [Suspect]
     Active Substance: ESCITALOPRAM OXALATE
     Indication: INTENTIONAL OVERDOSE
     Dosage: 820 MG, UNK
     Route: 048
     Dates: start: 20190210, end: 20190210
  2. DONORMYL (DOXYLAMINE SUCCINATE) [Suspect]
     Active Substance: DOXYLAMINE SUCCINATE
     Indication: INTENTIONAL OVERDOSE
     Dosage: 300 MG, UNK
     Route: 048
     Dates: start: 20190210, end: 20190210
  3. PARACETAMOL [Suspect]
     Active Substance: ACETAMINOPHEN
     Indication: INTENTIONAL OVERDOSE
     Dosage: 2 G, UNK
     Route: 048
     Dates: start: 20190210, end: 20190210
  4. DIAZEPAM. [Suspect]
     Active Substance: DIAZEPAM
     Indication: INTENTIONAL OVERDOSE
     Dosage: 480 MG, UNK (IN TOTAL)
     Route: 048
     Dates: start: 20190210, end: 20190210
  5. IBUPROFEN. [Suspect]
     Active Substance: IBUPROFEN
     Indication: INTENTIONAL OVERDOSE
     Dosage: 4400 MG, UNK
     Route: 048
     Dates: start: 20190210, end: 20190210
  6. DICLOFENAC [Suspect]
     Active Substance: DICLOFENAC
     Indication: INTENTIONAL OVERDOSE
     Dosage: 5000 MG, UNK
     Route: 048
     Dates: start: 20190210, end: 20190210
  7. COLCHICINE. [Suspect]
     Active Substance: COLCHICINE
     Indication: INTENTIONAL OVERDOSE
     Dosage: 6 MG, UNK
     Route: 048
     Dates: start: 20190210, end: 20190210
  8. DIANE (CYPROTERONE ACETATE\ETHINYL ESTRADIOL) [Suspect]
     Active Substance: CYPROTERONE ACETATE\ETHINYL ESTRADIOL
     Indication: INTENTIONAL OVERDOSE
     Dosage: 21 DF, UNK
     Route: 048
     Dates: start: 20190210, end: 20190210
  9. CIALIS [Suspect]
     Active Substance: TADALAFIL
     Indication: INTENTIONAL OVERDOSE
     Dosage: 40 MG, UNK
     Route: 048
     Dates: start: 20190210, end: 20190210

REACTIONS (5)
  - Product administered to patient of inappropriate age [Unknown]
  - Diarrhoea [Recovered/Resolved]
  - Intentional overdose [Unknown]
  - Hypotension [Recovered/Resolved]
  - Malaise [Recovered/Resolved]

NARRATIVE: CASE EVENT DATE: 20190210
